FAERS Safety Report 6832732-X (Version None)
Quarter: 2010Q3

REPORT INFORMATION
  Report Type: 
  Country: None (occurrence: None)
  Receive Date: 20100707
  Receipt Date: 20100625
  Transmission Date: 20110219
  Serious: Yes (Other)
  Sender: FDA-Public Use
  Company Number: 2010AP001326

PATIENT
  Age: 29 Year
  Sex: Female

DRUGS (3)
  1. RISPERIDONE [Suspect]
  2. CLOZAPINE [Suspect]
     Dosage: PO, (THERAPY DURATION 127 DAYS)
     Route: 048
     Dates: start: 20100113, end: 20100201
  3. CLOZAPINE [Suspect]
     Dosage: PO, (THERAPY DURATION 127 DAYS)
     Route: 048
     Dates: start: 20100225, end: 20100519

REACTIONS (2)
  - FALSE POSITIVE INVESTIGATION RESULT [None]
  - NEUTROPENIA [None]
